FAERS Safety Report 12595287 (Version 1)
Quarter: 2016Q3

REPORT INFORMATION
  Report Type: Spontaneous
  Country: US (occurrence: US)
  Receive Date: 20160727
  Receipt Date: 20160727
  Transmission Date: 20161109
  Serious: No
  Sender: FDA-Public Use
  Company Number: US-ASTRAZENECA-2016SE78641

PATIENT

DRUGS (1)
  1. RHINOCORT AQUA [Suspect]
     Active Substance: BUDESONIDE
     Indication: MULTIPLE ALLERGIES
     Dosage: SPRAY TWO TIMES IN EACH NOSTRIL DAILY AS NEEDED
     Route: 045

REACTIONS (1)
  - Sinus disorder [Unknown]

NARRATIVE: CASE EVENT DATE: 201607
